FAERS Safety Report 6191834-4 (Version None)
Quarter: 2009Q2

REPORT INFORMATION
  Report Type: 
  Country: None (occurrence: None)
  Receive Date: 20090515
  Receipt Date: 20090508
  Transmission Date: 20091009
  Serious: Yes (Other)
  Sender: FDA-Public Use
  Company Number: AU-PFIZER INC-2009206880

PATIENT

DRUGS (1)
  1. DIFLUCAN [Suspect]
     Indication: CANDIDIASIS
     Dosage: UNK
     Dates: start: 20090425, end: 20090425

REACTIONS (1)
  - STEVENS-JOHNSON SYNDROME [None]
